FAERS Safety Report 9672082 (Version 3)
Quarter: 2013Q4

REPORT INFORMATION
  Report Type: Spontaneous
  Country: JP (occurrence: JP)
  Receive Date: 20131106
  Receipt Date: 20131205
  Transmission Date: 20140711
  Serious: Yes (Other)
  Sender: FDA-Public Use
  Company Number: JP-PFIZER INC-2013310780

PATIENT
  Age: 36 Year
  Sex: Female
  Weight: 61 kg

DRUGS (2)
  1. HYSRON-H [Suspect]
     Indication: ENDOMETRIAL CANCER
     Dosage: UNK
     Route: 048
  2. BAYASPIRIN [Concomitant]
     Dosage: UNK

REACTIONS (1)
  - Hepatic function abnormal [Unknown]
